FAERS Safety Report 7212879-9 (Version None)
Quarter: 2010Q4

REPORT INFORMATION
  Report Type: 
  Country: None (occurrence: None)
  Receive Date: 20101229
  Receipt Date: 20101214
  Transmission Date: 20110411
  Serious: Yes (Death, Other)
  Sender: FDA-Public Use
  Company Number: 012335

PATIENT
  Age: 41 Month
  Sex: Male

DRUGS (2)
  1. BUSULFEX [Suspect]
     Indication: STEM CELL TRANSPLANT
     Dosage: 1 MG/KG, Q6HR, INTRAVENOUS
     Route: 042
  2. CYCLOPHOSPHAMIDE [Concomitant]

REACTIONS (8)
  - ACUTE RESPIRATORY DISTRESS SYNDROME [None]
  - BACTERAEMIA [None]
  - CEREBRAL HAEMORRHAGE [None]
  - CONVULSION [None]
  - DIARRHOEA [None]
  - PARAINFLUENZAE VIRUS INFECTION [None]
  - RESPIRATORY FAILURE [None]
  - WEIGHT GAIN POOR [None]
